FAERS Safety Report 12190249 (Version 1)
Quarter: 2016Q1

REPORT INFORMATION
  Report Type: Spontaneous
  Country: NL (occurrence: NL)
  Receive Date: 20160318
  Receipt Date: 20160318
  Transmission Date: 20160526
  Serious: Yes (Hospitalization)
  Sender: FDA-Public Use
  Company Number: NL-TEVA-643845ACC

PATIENT
  Sex: Female
  Weight: 70 kg

DRUGS (4)
  1. HYDROCHLOROTHIAZIDE TABLET 12,5MG [Suspect]
     Active Substance: HYDROCHLOROTHIAZIDE
     Indication: HYPERTENSION
     Dosage: 12.5 MILLIGRAM DAILY; ONCE DAILY ONE PIECE, ADDITIONAL INFO: 12.5 MG
     Route: 048
     Dates: start: 2004
  2. VALSARTAN TABLET OMHULD 160MG [Suspect]
     Active Substance: VALSARTAN
     Indication: HYPERTENSION
     Dosage: 160 MILLIGRAM DAILY; ONCE DAILY ONE PIECE
     Route: 048
     Dates: start: 2013
  3. BARNIDIPINE CAPSULE MGA 10MG [Suspect]
     Active Substance: BARNIDIPINE
     Indication: HYPERTENSION
     Dosage: 15 MILLIGRAM DAILY; ONCE DAILY ONE PIECE, ADDITIONAL INFO: 15 MG
     Route: 048
     Dates: start: 201402
  4. RIVAROXABAN TABLET  2,5MG [Concomitant]
     Dosage: 1 DOSAGE FORMS DAILY; ONCE DAILY ONE PIECE
     Route: 048
     Dates: start: 2014, end: 201601

REACTIONS (2)
  - Loss of consciousness [Unknown]
  - Presyncope [Recovered/Resolved]

NARRATIVE: CASE EVENT DATE: 2014
